FAERS Safety Report 6261330-4 (Version None)
Quarter: 2009Q3

REPORT INFORMATION
  Report Type: 
  Country: None (occurrence: None)
  Receive Date: 20090707
  Receipt Date: 20090626
  Transmission Date: 20100115
  Serious: Yes (Other)
  Sender: FDA-Public Use
  Company Number: 8048364

PATIENT
  Age: 33 Year
  Sex: Female

DRUGS (5)
  1. KEPPRA [Suspect]
     Indication: EPILEPSY
     Dosage: 2000 MG /D PO
     Route: 048
     Dates: start: 20070101
  2. MULTI-VITAMIN [Concomitant]
  3. PRENATAL [Concomitant]
  4. FOLIC ACID [Concomitant]
  5. NORCO [Concomitant]

REACTIONS (2)
  - ABORTION SPONTANEOUS [None]
  - DRUG EXPOSURE DURING PREGNANCY [None]
